FAERS Safety Report 11095449 (Version 1)
Quarter: 2015Q2

REPORT INFORMATION
  Report Type: Spontaneous
  Country: US (occurrence: US)
  Receive Date: 20150506
  Receipt Date: 20150506
  Transmission Date: 20150821
  Serious: Yes (Death)
  Sender: FDA-Public Use
  Company Number: US-ACTELION-A-US2015-117285

PATIENT
  Age: 76 Year
  Sex: Male

DRUGS (9)
  1. POTASSIUM CHLORIDE. [Concomitant]
     Active Substance: POTASSIUM CHLORIDE
  2. HYDROCHLOROTHIAZIDE. [Concomitant]
     Active Substance: HYDROCHLOROTHIAZIDE
  3. CITIRIZINE [Concomitant]
  4. VALCHLOR [Suspect]
     Active Substance: MECHLORETHAMINE
     Indication: MYCOSIS FUNGOIDES
     Dosage: UNK
     Route: 061
     Dates: start: 20140620, end: 201504
  5. CLOZARIL [Concomitant]
     Active Substance: CLOZAPINE
  6. MULTIVITAMINS [Concomitant]
     Active Substance: VITAMINS
  7. AMIODARONE [Concomitant]
     Active Substance: AMIODARONE
  8. AMLODIPINE [Concomitant]
     Active Substance: AMLODIPINE BESYLATE
  9. ROMIDEPSIN [Concomitant]
     Active Substance: ROMIDEPSIN
     Route: 042

REACTIONS (2)
  - Oxygen saturation decreased [Fatal]
  - White blood cell count decreased [Fatal]

NARRATIVE: CASE EVENT DATE: 20150413
